FAERS Safety Report 5039842-0 (Version None)
Quarter: 2006Q2

REPORT INFORMATION
  Report Type: 
  Country: None (occurrence: None)
  Receive Date: 20060630
  Receipt Date: 20060626
  Transmission Date: 20061013
  Serious: Yes (Other)
  Sender: FDA-Public Use
  Company Number: US-RB-3501-2006

PATIENT
  Age: 56 Year
  Sex: Female

DRUGS (1)
  1. BUPRENORPHINE, NALOXONE [Suspect]

REACTIONS (2)
  - DYSPNOEA [None]
  - RENAL FAILURE [None]
